FAERS Safety Report 10594568 (Version 1)
Quarter: 2014Q4

REPORT INFORMATION
  Report Type: Report from Study
  Country: BR (occurrence: BR)
  Receive Date: 20141120
  Receipt Date: 20141120
  Transmission Date: 20150529
  Serious: Yes (Other)
  Sender: FDA-Public Use
  Company Number: BR-ROCHE-1491897

PATIENT
  Sex: Female
  Weight: 74 kg

DRUGS (2)
  1. OMEPRAZOLE. [Concomitant]
     Active Substance: OMEPRAZOLE
     Route: 065
     Dates: start: 2003
  2. XOLAIR [Suspect]
     Active Substance: OMALIZUMAB
     Indication: EOSINOPHILIC PNEUMONIA
     Route: 065

REACTIONS (10)
  - Product use issue [Unknown]
  - Swelling [Recovering/Resolving]
  - Respiratory failure [Recovering/Resolving]
  - Eosinophil count increased [Recovering/Resolving]
  - Oedema [Recovering/Resolving]
  - Cataract [Recovering/Resolving]
  - Autoimmune disorder [Recovering/Resolving]
  - Osteoporosis [Recovering/Resolving]
  - Hypertension [Recovering/Resolving]
  - Feeling abnormal [Recovering/Resolving]
